FAERS Safety Report 8139281-X (Version None)
Quarter: 2012Q1

REPORT INFORMATION
  Report Type: 
  Country: None (occurrence: None)
  Receive Date: 20120215
  Receipt Date: 20120214
  Transmission Date: 20120608
  Serious: No
  Sender: FDA-Public Use
  Company Number: US-TEVA-318389USA

PATIENT
  Sex: Female
  Weight: 61.29 kg

DRUGS (1)
  1. COPAXONE [Suspect]
     Indication: MULTIPLE SCLEROSIS
     Dosage: 20 MILLIGRAM;
     Route: 058
     Dates: start: 20111001, end: 20120101

REACTIONS (4)
  - FEELING ABNORMAL [None]
  - INJECTION SITE URTICARIA [None]
  - VOMITING [None]
  - INJECTION SITE SWELLING [None]
